FAERS Safety Report 6421822-1 (Version None)
Quarter: 2009Q4

REPORT INFORMATION
  Report Type: 
  Country: None (occurrence: None)
  Receive Date: 20091030
  Receipt Date: 20091019
  Transmission Date: 20100525
  Serious: Yes (Death)
  Sender: FDA-Public Use
  Company Number: B0599419A

PATIENT

DRUGS (1)
  1. ALKERAN [Suspect]
     Indication: DRUG USE FOR UNKNOWN INDICATION
     Dosage: 50MG UNKNOWN
     Route: 042

REACTIONS (2)
  - ADENOVIRAL HAEMORRHAGIC CYSTITIS [None]
  - MULTI-ORGAN FAILURE [None]
